FAERS Safety Report 9397214 (Version 1)
Quarter: 2013Q3

REPORT INFORMATION
  Report Type: Spontaneous
  Country: US (occurrence: US)
  Receive Date: 20130712
  Receipt Date: 20130712
  Transmission Date: 20140515
  Serious: No
  Sender: FDA-Public Use
  Company Number: US-GLAXOSMITHKLINE-A1017530A

PATIENT
  Age: 78 Year
  Sex: Male

DRUGS (6)
  1. JALYN [Suspect]
     Indication: BENIGN PROSTATIC HYPERPLASIA
     Dosage: 1CAP PER DAY
     Route: 048
     Dates: start: 20130217, end: 20130323
  2. ASPIRIN [Concomitant]
  3. VITAMINS [Concomitant]
  4. OTHER MEDICATIONS [Concomitant]
  5. FLOMAX [Concomitant]
  6. AVODART [Concomitant]

REACTIONS (3)
  - Dysphagia [Recovered/Resolved]
  - Dyspepsia [Unknown]
  - Dyspepsia [Unknown]
